FAERS Safety Report 12482748 (Version 1)
Quarter: 2016Q2

REPORT INFORMATION
  Report Type: Spontaneous
  Country: IL (occurrence: IL)
  Receive Date: 20160620
  Receipt Date: 20160620
  Transmission Date: 20160815
  Serious: Yes (Other)
  Sender: FDA-Public Use
  Company Number: IL-PFIZER INC-2016246562

PATIENT
  Age: 40 Year
  Sex: Male

DRUGS (1)
  1. ELELYSO [Suspect]
     Active Substance: TALIGLUCERASE ALFA
     Indication: GAUCHER^S DISEASE
     Dosage: 1400 UNK, ONCE EVERY 2 WEEKS
     Route: 042
     Dates: start: 2008

REACTIONS (2)
  - Pain [Unknown]
  - Pelvic pain [Unknown]

NARRATIVE: CASE EVENT DATE: 2009
